FAERS Safety Report 5134077-5 (Version None)
Quarter: 2006Q4

REPORT INFORMATION
  Report Type: 
  Country: None (occurrence: None)
  Receive Date: 20061019
  Receipt Date: 20061009
  Transmission Date: 20070319
  Serious: Yes (Hospitalization, Other)
  Sender: FDA-Public Use
  Company Number: 2006124578

PATIENT
  Age: 61 Year
  Sex: Female
  Weight: 61 kg

DRUGS (3)
  1. LIPITOR [Suspect]
     Indication: HYPERCHOLESTEROLAEMIA
     Dosage: 20 MG QD, ORAL
     Route: 048
     Dates: start: 20050101
  2. MARCUMAR [Suspect]
     Dates: start: 20060101
  3. LANSOPRAZOLE [Concomitant]

REACTIONS (5)
  - DYSPNOEA [None]
  - MYALGIA [None]
  - NECK PAIN [None]
  - PYREXIA [None]
  - VASCULAR BYPASS GRAFT [None]
